FAERS Safety Report 23243423 (Version 1)
Quarter: 2023Q4

REPORT INFORMATION
  Report Type: Spontaneous
  Country: US (occurrence: US)
  Receive Date: 20231130
  Receipt Date: 20231130
  Transmission Date: 20240110
  Serious: Yes (Hospitalization, Other)
  Sender: FDA-Public Use
  Company Number: US-BAXTER-2023BAX036765

PATIENT
  Age: 73 Year
  Sex: Female

DRUGS (1)
  1. IFOSFAMIDE [Suspect]
     Active Substance: IFOSFAMIDE
     Indication: T-cell lymphoma
     Dosage: 5 G/M2, SECOND ROUND OF CHEMOTHERAPY
     Route: 042
     Dates: start: 20231112, end: 20231112

REACTIONS (4)
  - Neurotoxicity [Recovering/Resolving]
  - Seizure [Recovering/Resolving]
  - Encephalopathy [Not Recovered/Not Resolved]
  - Status epilepticus [Recovered/Resolved]

NARRATIVE: CASE EVENT DATE: 20231112
